FAERS Safety Report 12654184 (Version 1)
Quarter: 2016Q3

REPORT INFORMATION
  Report Type: Spontaneous
  Country: US (occurrence: None)
  Receive Date: 20160815
  Receipt Date: 20160815
  Transmission Date: 20161109
  Serious: Yes (Disabling)
  Sender: FDA-Public Use
  Company Number: None

PATIENT
  Age: 48 Year
  Sex: Female
  Weight: 53.52 kg

DRUGS (2)
  1. PROBIOTIC [Concomitant]
     Active Substance: PROBIOTICS NOS
  2. CIPROFLOXACIN 500 MG TAB, 500 MG WEST-WARD [Suspect]
     Active Substance: CIPROFLOXACIN
     Indication: DIVERTICULITIS
     Dosage: 1 TABLET TWICE A DAY
     Route: 048
     Dates: start: 20160619, end: 20160628

REACTIONS (4)
  - Tendon pain [None]
  - Tendon disorder [None]
  - Pain in extremity [None]
  - Tendon rupture [None]

NARRATIVE: CASE EVENT DATE: 20160622
